FAERS Safety Report 25049440 (Version 1)
Quarter: 2025Q1

REPORT INFORMATION
  Report Type: Spontaneous
  Country: FR (occurrence: FR)
  Receive Date: 20250307
  Receipt Date: 20250307
  Transmission Date: 20250409
  Serious: Yes (Life-Threatening, Hospitalization, Disabling, Other)
  Sender: AVERITAS
  Company Number: FR-GRUNENTHAL-2025-103669

PATIENT
  Sex: Male
  Weight: 66.9 kg

DRUGS (2)
  1. CAPSAICIN [Suspect]
     Active Substance: CAPSAICIN
     Indication: Scar pain
     Route: 003
     Dates: start: 20250226, end: 20250226
  2. CAPSAICIN [Suspect]
     Active Substance: CAPSAICIN
     Indication: Neuralgia

REACTIONS (4)
  - Chest discomfort [Recovering/Resolving]
  - Dyspnoea [Recovering/Resolving]
  - Loss of consciousness [Recovering/Resolving]
  - Miosis [Recovering/Resolving]

NARRATIVE: CASE EVENT DATE: 20250227
